FAERS Safety Report 24874782 (Version 1)
Quarter: 2025Q1

REPORT INFORMATION
  Report Type: Spontaneous
  Country: US (occurrence: US)
  Receive Date: 20250122
  Receipt Date: 20250122
  Transmission Date: 20250409
  Serious: No
  Sender: BIOGEN
  Company Number: US-BIOGEN-2021BI01040141

PATIENT
  Age: 68 Year
  Sex: Female

DRUGS (4)
  1. VUMERITY [Suspect]
     Active Substance: DIROXIMEL FUMARATE
     Indication: Multiple sclerosis
     Dosage: 231 MG 1 CAPSULE ORALLY TWICE A DAY FOR 7 DAYS THEN 2 CAPSULES (462 MG) ORALLY TWICE A DAY THEREA...
     Route: 050
     Dates: start: 20210805
  2. VUMERITY [Suspect]
     Active Substance: DIROXIMEL FUMARATE
     Dosage: 231 MG 1 CAPSULE ORALLY TWICE A DAY FOR 7 DAYS THEN 2 CAPSULES (462 MG) ORALLY TWICE A DAY THEREA...
     Route: 050
     Dates: start: 202108
  3. PROLIA [Concomitant]
     Active Substance: DENOSUMAB
     Route: 050
  4. ZETIA [Concomitant]
     Active Substance: EZETIMIBE
     Route: 050

REACTIONS (2)
  - Abdominal discomfort [Unknown]
  - Hypoacusis [Unknown]

NARRATIVE: CASE EVENT DATE: 20210801
